FAERS Safety Report 4365852-2 (Version None)
Quarter: 2004Q2

REPORT INFORMATION
  Report Type: 
  Country: None (occurrence: None)
  Receive Date: 20040524
  Receipt Date: 20040202
  Transmission Date: 20050107
  Serious: No
  Sender: FDA-Public Use
  Company Number: SU-2004-002103

PATIENT
  Age: 53 Year
  Sex: Female
  Weight: 63.5036 kg

DRUGS (13)
  1. BENICAR [Suspect]
     Indication: HYPERTENSION
     Dosage: 20 MG QD PO
     Route: 048
     Dates: start: 20031202
  2. ALBUTEROL [Concomitant]
  3. COMBIVENT [Concomitant]
  4. DUOVENT [Concomitant]
  5. ADVAIR DISKUS 100/50 [Concomitant]
  6. SINGULAIR [Concomitant]
  7. FLOVENT [Concomitant]
  8. DITROPAN [Concomitant]
  9. CRESTOR [Concomitant]
  10. ACTONEL [Concomitant]
  11. ASPIRIN [Concomitant]
  12. PROTONIX [Concomitant]
  13. SUCRALFATE [Concomitant]

REACTIONS (1)
  - OEDEMA PERIPHERAL [None]
